FAERS Safety Report 12909710 (Version 1)
Quarter: 2016Q4

REPORT INFORMATION
  Report Type: Spontaneous
  Country: US (occurrence: US)
  Receive Date: 20161104
  Receipt Date: 20161104
  Transmission Date: 20170207
  Serious: No
  Sender: FDA-Public Use
  Company Number: US-B.I. PHARMACEUTICALS,INC./RIDGEFIELD-2016-BI-069606

PATIENT
  Age: 60 Year
  Sex: Male

DRUGS (12)
  1. RAMIPRIL. [Concomitant]
     Active Substance: RAMIPRIL
     Indication: CARDIAC DISORDER
     Route: 048
  2. TIKOSYN [Concomitant]
     Active Substance: DOFETILIDE
     Route: 048
  3. XOPENEX [Concomitant]
     Active Substance: LEVALBUTEROL HYDROCHLORIDE
     Dosage: AS NEEDED;
  4. STIOLTO RESPIMAT [Suspect]
     Active Substance: OLODATEROL HYDROCHLORIDE\TIOTROPIUM BROMIDE MONOHYDRATE
     Indication: BRONCHITIS CHRONIC
     Dosage: 2 INHALATIONS OF 2.5 MCG ONCE A DAY AT THE SAME TIME.
     Route: 055
     Dates: start: 20161016
  5. ZYFLO [Concomitant]
     Active Substance: ZILEUTON
  6. LASIX [Concomitant]
     Active Substance: FUROSEMIDE
  7. FLONASE [Concomitant]
     Active Substance: FLUTICASONE PROPIONATE
     Route: 045
  8. DILTIAZEM. [Concomitant]
     Active Substance: DILTIAZEM
     Route: 048
  9. SYNTHROID [Concomitant]
     Active Substance: LEVOTHYROXINE SODIUM
     Route: 048
  10. POTASSIUM [Concomitant]
     Active Substance: POTASSIUM
  11. STIOLTO RESPIMAT [Suspect]
     Active Substance: OLODATEROL HYDROCHLORIDE\TIOTROPIUM BROMIDE MONOHYDRATE
     Indication: CHRONIC OBSTRUCTIVE PULMONARY DISEASE
  12. PULMICORT TURBUHALER [Concomitant]
     Active Substance: BUDESONIDE
     Route: 055

REACTIONS (4)
  - Chest discomfort [Unknown]
  - Musculoskeletal chest pain [Not Recovered/Not Resolved]
  - Cough [Not Recovered/Not Resolved]
  - Aptyalism [Recovered/Resolved]

NARRATIVE: CASE EVENT DATE: 20161016
